FAERS Safety Report 9662350 (Version 2)
Quarter: 2013Q4

REPORT INFORMATION
  Report Type: Spontaneous
  Country: US (occurrence: US)
  Receive Date: 20131031
  Receipt Date: 20131031
  Transmission Date: 20140711
  Serious: No
  Sender: FDA-Public Use
  Company Number: US-PURDUE-USA-2010-0063150

PATIENT
  Sex: Male

DRUGS (2)
  1. OXYCONTIN (NDA 22-272) [Suspect]
     Indication: PAIN
     Dosage: 80 MG, BID
  2. OXYCODONE HCL IR CAPSULES [Concomitant]
     Indication: BREAKTHROUGH PAIN
     Dosage: 15 MG, UNK

REACTIONS (5)
  - Blood glucose abnormal [Unknown]
  - Foreign body [Unknown]
  - Drug intolerance [Unknown]
  - Drug effect decreased [Unknown]
  - Abdominal pain upper [Unknown]
